FAERS Safety Report 16267454 (Version 1)
Quarter: 2019Q2

REPORT INFORMATION
  Report Type: Report from Study
  Country: None (occurrence: US)
  Receive Date: 20190503
  Receipt Date: 20190503
  Transmission Date: 20190711
  Serious: Yes (Other)
  Sender: FDA-Public Use
  Company Number: US-ABBVIE-19K-163-2703122-00

PATIENT
  Sex: Male
  Weight: 80.36 kg

DRUGS (3)
  1. VITAMIN B1 [Concomitant]
     Active Substance: THIAMINE HYDROCHLORIDE
     Indication: VITAMIN SUPPLEMENTATION
  2. HUMIRA [Suspect]
     Active Substance: ADALIMUMAB
     Indication: RHEUMATOID ARTHRITIS
     Route: 058
     Dates: start: 2015
  3. TOPIRAMATE. [Concomitant]
     Active Substance: TOPIRAMATE
     Indication: MIGRAINE PROPHYLAXIS

REACTIONS (7)
  - Left ventricular hypertrophy [Unknown]
  - Carotid artery occlusion [Not Recovered/Not Resolved]
  - Diastolic dysfunction [Unknown]
  - Mitral valve incompetence [Unknown]
  - Balance disorder [Not Recovered/Not Resolved]
  - Adhesion [Not Recovered/Not Resolved]
  - Cataract [Recovering/Resolving]

NARRATIVE: CASE EVENT DATE: 2016
